FAERS Safety Report 8234750 (Version 4)
Quarter: 2013Q2

REPORT INFORMATION
  Report Type: Spontaneous
  Country: US (occurrence: None)
  Receive Date: 20111101
  Receipt Date: 20130628
  Transmission Date: 20140414
  Serious: Yes (Death, Life-Threatening, Hospitalization, Other)
  Sender: FDA-Public Use
  Company Number: 2011SGN00245

PATIENT
  Age: 86 Year
  Sex: Male

DRUGS (15)
  1. BRENTUXIMAB VEDOTIN [Suspect]
     Indication: ANAPLASTIC LARGE-CELL LYMPHOMA
     Dosage: 1.8 MG/KG, Q21D, INTRAVENOUS
     Route: 042
     Dates: start: 20111006, end: 20111006
  2. BUMEX [Concomitant]
  3. COZAAR [Concomitant]
  4. EFFEXOR XR [Concomitant]
  5. HYDROCODONE BITARTRATE AND ACETAMINOPHEN (HYDROCODONE BITARTRATE, PARACETAMOL) [Concomitant]
  6. MECLIZINE [Concomitant]
  7. METOPROLOL TARTRATE [Concomitant]
  8. PEPCID [Concomitant]
  9. PLAVIX [Concomitant]
  10. SENNA [Concomitant]
  11. SIMVASTATIN [Concomitant]
  12. SINGULAIR [Concomitant]
  13. PSEUDOEPHEDRINE HYDROCHLORIDE [Concomitant]
  14. TERAZOSIN HYDROCHLORIDE [Concomitant]
  15. VESICARE [Concomitant]

REACTIONS (22)
  - Myalgia [None]
  - Pyrexia [None]
  - Sepsis [None]
  - Dehydration [None]
  - Decreased appetite [None]
  - Cardiac failure congestive [None]
  - Respiratory arrest [None]
  - Myocardial infarction [None]
  - Nausea [None]
  - Pain [None]
  - Tremor [None]
  - Abasia [None]
  - Fluid intake reduced [None]
  - Malaise [None]
  - Renal failure acute [None]
  - Agitation [None]
  - Delirium [None]
  - Hallucination, visual [None]
  - Dialysis [None]
  - Unresponsive to stimuli [None]
  - Pulmonary oedema [None]
  - Infection [None]
